FAERS Safety Report 14596059 (Version 1)
Quarter: 2018Q1

REPORT INFORMATION
  Report Type: Spontaneous
  Country: US (occurrence: US)
  Receive Date: 20180303
  Receipt Date: 20180303
  Transmission Date: 20180509
  Serious: Yes (Hospitalization, Other)
  Sender: FDA-Public Use
  Company Number: US-GLAXOSMITHKLINE-US2018035420

PATIENT
  Age: 93 Year
  Sex: Female

DRUGS (2)
  1. BREO ELLIPTA [Suspect]
     Active Substance: FLUTICASONE FUROATE\VILANTEROL TRIFENATATE
     Indication: CHRONIC OBSTRUCTIVE PULMONARY DISEASE
     Dosage: 1 PUFF(S), QD
     Route: 055
  2. LASIX [Concomitant]
     Active Substance: FUROSEMIDE

REACTIONS (10)
  - Aortic stenosis [Unknown]
  - Pulmonary hypertension [Unknown]
  - Urinary tract infection [Unknown]
  - Respiratory disorder [Unknown]
  - Transcatheter aortic valve implantation [Recovered/Resolved]
  - Cardiac failure congestive [Unknown]
  - Dyspnoea [Recovered/Resolved]
  - Wheezing [Unknown]
  - Asthenia [Unknown]
  - Pneumonia aspiration [Unknown]

NARRATIVE: CASE EVENT DATE: 201706
